FAERS Safety Report 17316774 (Version 1)
Quarter: 2020Q1

REPORT INFORMATION
  Report Type: Spontaneous
  Country: US (occurrence: US)
  Receive Date: 20200124
  Receipt Date: 20200124
  Transmission Date: 20200409
  Serious: No
  Sender: FDA-Public Use
  Company Number: US-PERRIGO-19US002977

PATIENT
  Age: 1 Year
  Sex: Female
  Weight: 13.15 kg

DRUGS (3)
  1. IBUPROFEN. [Suspect]
     Active Substance: IBUPROFEN
     Indication: TEETHING
     Dosage: 100 MG, EVERY 6 HOURS
     Route: 048
     Dates: start: 20190227, end: 20190227
  2. IBUPROFEN. [Suspect]
     Active Substance: IBUPROFEN
     Indication: PAIN
     Dosage: 100 MG, EVERY 6 HOURS
     Route: 048
     Dates: start: 20190218, end: 20190218
  3. IBUPROFEN. [Suspect]
     Active Substance: IBUPROFEN
     Dosage: UNKNOWN AMOUNT, SINGLE
     Route: 048
     Dates: start: 20190303, end: 20190303

REACTIONS (3)
  - Frequent bowel movements [Recovered/Resolved]
  - Accidental exposure to product by child [Recovered/Resolved]
  - Drug administered in wrong device [Recovered/Resolved]

NARRATIVE: CASE EVENT DATE: 20190218
